FAERS Safety Report 5808353-4 (Version None)
Quarter: 2008Q3

REPORT INFORMATION
  Report Type: 
  Country: None (occurrence: None)
  Receive Date: 20080714
  Receipt Date: 20080701
  Transmission Date: 20090109
  Serious: Yes (Death, Hospitalization)
  Sender: FDA-Public Use
  Company Number: PHHY2008JP09195

PATIENT
  Age: 64 Year
  Sex: Male

DRUGS (4)
  1. ZOLEDRONIC ACID [Suspect]
     Indication: LUNG SQUAMOUS CELL CARCINOMA STAGE UNSPECIFIED
     Dosage: 4 MG DILUTED TO 100ML
     Route: 041
     Dates: start: 20071010, end: 20080409
  2. CARBOPLATIN [Concomitant]
     Indication: LUNG SQUAMOUS CELL CARCINOMA STAGE UNSPECIFIED
     Dosage: 450 MG/ DAY
     Route: 042
     Dates: start: 20071031, end: 20080409
  3. TAXOL [Concomitant]
     Indication: LUNG SQUAMOUS CELL CARCINOMA STAGE UNSPECIFIED
     Dosage: UNK
     Route: 042
     Dates: start: 20071031, end: 20080423
  4. NEUTROGIN [Concomitant]
     Dosage: 100 UG PER DAY
     Route: 042
     Dates: start: 20071201, end: 20080427

REACTIONS (4)
  - BLOOD UREA INCREASED [None]
  - HYPOCALCAEMIA [None]
  - MALIGNANT NEOPLASM PROGRESSION [None]
  - SPINAL COMPRESSION FRACTURE [None]
